FAERS Safety Report 21386592 (Version 1)
Quarter: 2022Q3

REPORT INFORMATION
  Report Type: Spontaneous
  Country: US (occurrence: None)
  Receive Date: 20220926
  Receipt Date: 20220926
  Transmission Date: 20221027
  Serious: No
  Sender: FDA-Public Use
  Company Number: None

PATIENT
  Age: 52 Year
  Sex: Female

DRUGS (2)
  1. TIVICAY [Suspect]
     Active Substance: DOLUTEGRAVIR SODIUM
     Indication: HIV infection
     Dosage: 50MG QD PO?
     Route: 048
     Dates: start: 20210704, end: 20220909
  2. DESCOVY [Suspect]
     Active Substance: EMTRICITABINE\TENOFOVIR ALAFENAMIDE FUMARATE
     Indication: HIV infection
     Dosage: 200/25  QD PO?
     Route: 048
     Dates: start: 20210704, end: 20220809

REACTIONS (1)
  - Nonspecific reaction [None]

NARRATIVE: CASE EVENT DATE: 20220830
